FAERS Safety Report 8244745-4 (Version None)
Quarter: 2012Q1

REPORT INFORMATION
  Report Type: 
  Country: None (occurrence: None)
  Receive Date: 20120329
  Receipt Date: 20110311
  Transmission Date: 20120608
  Serious: No
  Sender: FDA-Public Use
  Company Number: US-MYLANLABS-2011S1005397

PATIENT
  Age: 44 Year
  Sex: Female

DRUGS (4)
  1. OXYCODONE HCL [Concomitant]
  2. LISINOPRIL [Concomitant]
     Indication: BLOOD PRESSURE
  3. FENTANYL-100 [Suspect]
     Indication: BACK PAIN
     Dosage: CHANGED Q72H.
     Route: 062
     Dates: start: 20110201
  4. ATIVAN [Concomitant]

REACTIONS (1)
  - HOT FLUSH [None]
